FAERS Safety Report 5631319-4 (Version None)
Quarter: 2008Q1

REPORT INFORMATION
  Report Type: 
  Country: None (occurrence: None)
  Receive Date: 20080212
  Receipt Date: 20080204
  Transmission Date: 20080703
  Serious: Yes (Death)
  Sender: FDA-Public Use
  Company Number: 2008-00866

PATIENT
  Age: 37 Year
  Sex: Female

DRUGS (8)
  1. FORTAMET [Suspect]
  2. DIAZEPAM [Suspect]
  3. GLIPIZIDE [Suspect]
  4. GABAPENTIN [Suspect]
  5. HYDROCODONE BITARTRATE/ACETAMINOPHEN (WATSON)(ACETAMINOPHEN, HDYROCODO [Suspect]
  6. VENLAFAXINE HCL [Suspect]
  7. RAMIPRIL [Suspect]
  8. ANITHISTAMINE/DECONGESTANT [Suspect]

REACTIONS (1)
  - DEATH [None]
